FAERS Safety Report 5059833-3 (Version None)
Quarter: 2006Q3

REPORT INFORMATION
  Report Type: 
  Country: None (occurrence: None)
  Receive Date: 20060718
  Receipt Date: 20060710
  Transmission Date: 20061208
  Serious: Yes (Other)
  Sender: FDA-Public Use
  Company Number: ORYNIA20060023

PATIENT
  Age: 47 Year
  Sex: Male
  Weight: 78.9259 kg

DRUGS (3)
  1. NIASPAN [Suspect]
     Indication: HYPERCHOLESTEROLAEMIA
     Dosage: 1000 MG QD PO
     Route: 048
     Dates: start: 20060501
  2. COMBIGAN [Concomitant]
  3. DIOVAN HCT [Concomitant]

REACTIONS (3)
  - ANGIONEUROTIC OEDEMA [None]
  - IMPAIRED WORK ABILITY [None]
  - PERIORBITAL OEDEMA [None]
